FAERS Safety Report 5767391-0 (Version None)
Quarter: 2008Q2

REPORT INFORMATION
  Report Type: 
  Country: None (occurrence: None)
  Receive Date: 20080612
  Receipt Date: 20080611
  Transmission Date: 20081010
  Serious: Yes (Life-Threatening, Hospitalization)
  Sender: FDA-Public Use
  Company Number: B0524253A

PATIENT
  Age: 43 Year
  Sex: Male

DRUGS (3)
  1. SEROXAT [Suspect]
     Indication: ANXIETY
     Dosage: 20MG PER DAY
     Route: 048
     Dates: start: 20080417, end: 20080424
  2. ALPRAZOLAM [Concomitant]
     Dates: end: 20080428
  3. VITAMIN B6 [Concomitant]
     Dates: end: 20080428

REACTIONS (3)
  - HYPERSENSITIVITY [None]
  - LARYNGEAL OEDEMA [None]
  - RASH [None]
